FAERS Safety Report 8537739-2 (Version None)
Quarter: 2012Q3

REPORT INFORMATION
  Report Type: 
  Country: None (occurrence: None)
  Receive Date: 20120725
  Receipt Date: 20120720
  Transmission Date: 20120928
  Serious: Yes (Death)
  Sender: FDA-Public Use
  Company Number: US-AMGEN-QUU286119

PATIENT
  Age: 53 Year
  Sex: Male
  Weight: 68.6 kg

DRUGS (4)
  1. UNSPECIFIED ANTINEOPLASTIC AGENT [Concomitant]
     Dosage: UNK UNK, UNK
     Dates: start: 20070401, end: 20070701
  2. ARANESP [Suspect]
     Indication: ANAEMIA OF MALIGNANT DISEASE
     Dosage: 200 MUG, Q2WK
     Route: 058
     Dates: start: 20070410, end: 20071106
  3. PROCRIT [Suspect]
     Dosage: UNK UNK, UNK
     Dates: start: 20080111, end: 20080111
  4. NEULASTA [Suspect]
     Dosage: 6 MG, UNK
     Route: 058
     Dates: start: 20070411, end: 20070726

REACTIONS (2)
  - METASTASES TO BONE [None]
  - LUNG NEOPLASM MALIGNANT [None]
